FAERS Safety Report 5655998-0 (Version None)
Quarter: 2008Q1

REPORT INFORMATION
  Report Type: 
  Country: None (occurrence: None)
  Receive Date: 20080307
  Receipt Date: 20080228
  Transmission Date: 20080703
  Serious: Yes (Hospitalization)
  Sender: FDA-Public Use
  Company Number: FR-ABBOTT-08P-056-0440255-00

PATIENT
  Sex: Female

DRUGS (3)
  1. DEPAKENE [Suspect]
     Indication: ABNORMAL BEHAVIOUR
     Route: 048
     Dates: start: 20071129, end: 20080124
  2. RISPERIDONE [Concomitant]
     Indication: DELIRIUM
     Route: 048
     Dates: end: 20080124
  3. RISPERIDONE [Concomitant]

REACTIONS (5)
  - CHOLESTASIS [None]
  - DELIRIUM [None]
  - HALLUCINATION [None]
  - HEPATOCELLULAR INJURY [None]
  - MIXED LIVER INJURY [None]
